FAERS Safety Report 8282446-7 (Version None)
Quarter: 2012Q2

REPORT INFORMATION
  Report Type: 
  Country: None (occurrence: None)
  Receive Date: 20120413
  Receipt Date: 20120410
  Transmission Date: 20120825
  Serious: Yes (Life-Threatening, Hospitalization)
  Sender: FDA-Public Use
  Company Number: US-JNJFOC-20120404722

PATIENT
  Age: 44 Year
  Sex: Female
  Weight: 119.5 kg

DRUGS (15)
  1. PEGFILGRASTIM [Suspect]
     Indication: PRODUCT USED FOR UNKNOWN INDICATION
     Route: 065
  2. TYLENOL (CAPLET) [Concomitant]
     Route: 065
  3. PROCHLORPERAZINE [Concomitant]
     Route: 065
  4. TOPROL-XL [Concomitant]
     Route: 065
  5. CYCLOPHOSPHAMIDE [Suspect]
     Indication: BREAST CANCER
     Route: 042
     Dates: start: 20110324
  6. CEFEPIME [Concomitant]
     Route: 065
  7. DOXIL [Suspect]
     Indication: BREAST CANCER
     Route: 042
     Dates: start: 20110324
  8. MUCINEX [Concomitant]
     Route: 065
  9. BEVACIZUMAB [Suspect]
     Indication: BREAST CANCER
     Route: 042
     Dates: start: 20110324
  10. DIFLUCAN [Concomitant]
     Route: 065
  11. BACITRACIN [Concomitant]
     Route: 065
  12. PACLITAXEL [Suspect]
     Indication: BREAST CANCER
     Route: 042
     Dates: start: 20110324
  13. AMBIEN [Concomitant]
     Route: 065
  14. PEPCID [Concomitant]
     Route: 065
  15. TESSALON [Concomitant]
     Route: 065

REACTIONS (14)
  - CARDIAC DISORDER [None]
  - HYPERTENSION [None]
  - WHITE BLOOD CELL COUNT DECREASED [None]
  - LYMPHATIC DISORDER [None]
  - GASTROOESOPHAGEAL REFLUX DISEASE [None]
  - ANAEMIA [None]
  - BLOOD DISORDER [None]
  - TYPE 2 DIABETES MELLITUS [None]
  - PANCYTOPENIA [None]
  - DIABETES MELLITUS [None]
  - FEBRILE NEUTROPENIA [None]
  - DIARRHOEA [None]
  - PLATELET COUNT DECREASED [None]
  - HYPERGLYCAEMIA [None]
